FAERS Safety Report 9127700 (Version 1)
Quarter: 2013Q1

REPORT INFORMATION
  Report Type: Spontaneous
  Country: US (occurrence: US)
  Receive Date: 20130228
  Receipt Date: 20130228
  Transmission Date: 20140127
  Serious: No
  Sender: FDA-Public Use
  Company Number: US-GLAXOSMITHKLINE-A0993674A

PATIENT
  Age: 78 Year
  Sex: Female

DRUGS (5)
  1. LAMOTRIGINE [Suspect]
     Indication: CONVULSION
     Route: 048
     Dates: start: 201208
  2. RISEDRONATE [Suspect]
     Indication: OSTEOPOROSIS PROPHYLAXIS
     Dosage: 1TAB WEEKLY
     Route: 048
     Dates: start: 201208
  3. PRAVASTATIN [Concomitant]
  4. AMLODIPINE [Concomitant]
  5. LEVOTHYROXINE [Concomitant]

REACTIONS (4)
  - Dyspepsia [Unknown]
  - Asthenia [Unknown]
  - Feeling abnormal [Unknown]
  - Diarrhoea [Unknown]
